FAERS Safety Report 4611799-3 (Version None)
Quarter: 2005Q1

REPORT INFORMATION
  Report Type: 
  Country: None (occurrence: None)
  Receive Date: 20050317
  Receipt Date: 20050224
  Transmission Date: 20050727
  Serious: Yes (Life-Threatening, Hospitalization, Disabling)
  Sender: FDA-Public Use
  Company Number: ES-ABBOTT-05P-144-0292041-01

PATIENT
  Sex: Male
  Weight: 60 kg

DRUGS (7)
  1. HUMIRA [Suspect]
     Indication: RHEUMATOID ARTHRITIS
     Route: 058
     Dates: start: 20041207, end: 20041207
  2. PREDNISONE [Concomitant]
     Indication: RHEUMATOID ARTHRITIS
     Dates: start: 20041129
  3. SPIRONOLACTONE [Concomitant]
     Indication: HYPERTENSION
     Dates: start: 20041124
  4. FUROSEMIDE [Concomitant]
     Indication: HYPERTENSION
     Dates: start: 20041124
  5. ENALAPRIL [Concomitant]
     Indication: HYPERTENSION
     Dates: start: 20041129
  6. ACETYLSALICYLIC ACID SRT [Concomitant]
     Indication: ISCHAEMIC CARDIOMYOPATHY
     Dates: start: 20041124
  7. ATENOLOL [Concomitant]
     Indication: HYPERTENSION
     Dates: start: 20041129

REACTIONS (1)
  - CARDIAC FAILURE CONGESTIVE [None]
